FAERS Safety Report 6936267-5 (Version None)
Quarter: 2010Q3

REPORT INFORMATION
  Report Type: 
  Country: None (occurrence: None)
  Receive Date: 20100817
  Receipt Date: 20100617
  Transmission Date: 20110219
  Serious: No
  Sender: FDA-Public Use
  Company Number: WAES 1006USA02961

PATIENT
  Age: 46 Year
  Sex: Female

DRUGS (1)
  1. ISENTRESS [Suspect]
     Indication: HIV INFECTION
     Dosage: 400 MG/BID/PO
     Route: 048
     Dates: start: 20090601

REACTIONS (2)
  - BLOOD CREATINE PHOSPHOKINASE INCREASED [None]
  - RENAL IMPAIRMENT [None]
